FAERS Safety Report 8156252-8 (Version None)
Quarter: 2012Q1

REPORT INFORMATION
  Report Type: 
  Country: None (occurrence: None)
  Receive Date: 20120221
  Receipt Date: 20120221
  Transmission Date: 20120608
  Serious: Yes (Death)
  Sender: FDA-Public Use
  Company Number: None

PATIENT
  Age: 80 Year
  Sex: Female
  Weight: 63.9 kg

DRUGS (7)
  1. CRYOPRECIPITATED AHF [Concomitant]
  2. AMLODIPINE [Concomitant]
  3. TNKASE [Suspect]
     Indication: VASCULAR GRAFT OCCLUSION
     Dosage: 0.15-0.3 MG/HR CONTINUOUS DIRECTED CATHERTER THROMBOLYSIS
     Dates: start: 20120201, end: 20120204
  4. TNKASE [Suspect]
     Indication: PERIPHERAL VASCULAR DISORDER
     Dosage: 0.15-0.3 MG/HR CONTINUOUS DIRECTED CATHERTER THROMBOLYSIS
     Dates: start: 20120201, end: 20120204
  5. RED BLOOD CELLS [Concomitant]
  6. METOPROLOL SUCCINATE [Concomitant]
  7. FRESH FROZEN PLASMA [Concomitant]

REACTIONS (9)
  - COLD SWEAT [None]
  - PULSE ABSENT [None]
  - HAEMATOMA [None]
  - HEADACHE [None]
  - WOUND SECRETION [None]
  - HAEMOGLOBIN DECREASED [None]
  - PLATELET COUNT DECREASED [None]
  - HEMIPARESIS [None]
  - HAEMORRHAGE INTRACRANIAL [None]
